FAERS Safety Report 19969786 (Version 1)
Quarter: 2021Q4

REPORT INFORMATION
  Report Type: Spontaneous
  Country: DE (occurrence: DE)
  Receive Date: 20211019
  Receipt Date: 20211019
  Transmission Date: 20220303
  Serious: Yes (Congenital Anomaly)
  Sender: FDA-Public Use
  Company Number: DE-EMBRYOTOX-202102906

PATIENT
  Age: 1 Day
  Sex: Female

DRUGS (2)
  1. EMTRICITABINE\TENOFOVIR DISOPROXIL [Suspect]
     Active Substance: EMTRICITABINE\TENOFOVIR DISOPROXIL
     Indication: HIV infection
     Dosage: 200 MILLIGRAM DAILY; ADDITIONAL INFO :0. - 40. GESTATIONAL WEEK
     Route: 064
     Dates: start: 20200415, end: 20210120
  2. KALETRA [Suspect]
     Active Substance: LOPINAVIR\RITONAVIR
     Indication: HIV infection
     Dosage: 200 [MG/D (100-0-100) ] / 800 [MG/D (400-0-400) ] 2 SEPARATED DOSES , ADDITIONAL INFO : 0. - 40. GES
     Route: 064
     Dates: start: 20200415, end: 20210120

REACTIONS (2)
  - Brachydactyly [Not Recovered/Not Resolved]
  - Foetal exposure during pregnancy [Unknown]

NARRATIVE: CASE EVENT DATE: 20200415
